FAERS Safety Report 16735241 (Version 1)
Quarter: 2019Q3

REPORT INFORMATION
  Report Type: Spontaneous
  Country: TR (occurrence: TR)
  Receive Date: 20190823
  Receipt Date: 20190823
  Transmission Date: 20191005
  Serious: Yes (Life-Threatening)
  Sender: FDA-Public Use
  Company Number: TR-PFIZER INC-2019360060

PATIENT
  Age: 59 Year
  Sex: Male

DRUGS (1)
  1. SUTENT [Suspect]
     Active Substance: SUNITINIB MALATE
     Indication: SOFT TISSUE SARCOMA
     Dosage: 25 MG, UNK
     Route: 048
     Dates: start: 201802

REACTIONS (7)
  - Hypersensitivity [Unknown]
  - Thinking abnormal [Unknown]
  - Oedema [Unknown]
  - Nausea [Unknown]
  - Wound [Unknown]
  - Hyperchlorhydria [Not Recovered/Not Resolved]
  - Embolism [Not Recovered/Not Resolved]

NARRATIVE: CASE EVENT DATE: 20190224
